FAERS Safety Report 26212078 (Version 1)
Quarter: 2025Q4

REPORT INFORMATION
  Report Type: Report from Study
  Country: IN (occurrence: IN)
  Receive Date: 20251230
  Receipt Date: 20251230
  Transmission Date: 20260118
  Serious: Yes (Other)
  Sender: DAIICHI
  Company Number: IN-AstraZeneca-CH-01019700A

PATIENT
  Age: 53 Year
  Sex: Female
  Weight: 56 kg

DRUGS (1)
  1. ENHERTU [Suspect]
     Active Substance: FAM-TRASTUZUMAB DERUXTECAN-NXKI
     Indication: Product used for unknown indication
     Dosage: UNK
     Route: 065

REACTIONS (12)
  - Hemiparesis [Unknown]
  - Mouth ulceration [Unknown]
  - Swelling face [Unknown]
  - Lacrimation increased [Unknown]
  - Vision blurred [Unknown]
  - Asthenia [Unknown]
  - Skin hyperpigmentation [Unknown]
  - Disorganised speech [Unknown]
  - Mental status changes [Unknown]
  - Localised infection [Unknown]
  - Injection site discolouration [Unknown]
  - Burning sensation [Unknown]
